FAERS Safety Report 9345266 (Version 1)
Quarter: 2013Q2

REPORT INFORMATION
  Report Type: Spontaneous
  Country: CA (occurrence: CA)
  Receive Date: 20130613
  Receipt Date: 20130613
  Transmission Date: 20140414
  Serious: Yes (Hospitalization)
  Sender: FDA-Public Use
  Company Number: CA-009507513-1306CAN004947

PATIENT
  Age: 59 Year
  Sex: Male
  Weight: 51.25 kg

DRUGS (2)
  1. ZENHALE [Suspect]
     Indication: CHRONIC OBSTRUCTIVE PULMONARY DISEASE
     Dosage: UNK
     Dates: start: 201301
  2. ADVAIR [Suspect]
     Indication: CHRONIC OBSTRUCTIVE PULMONARY DISEASE
     Dosage: UNK
     Dates: start: 2005

REACTIONS (3)
  - Pneumonia [Unknown]
  - Bronchitis [Unknown]
  - Weight decreased [Unknown]
